FAERS Safety Report 17684918 (Version 1)
Quarter: 2020Q2

REPORT INFORMATION
  Report Type: Spontaneous
  Country: US (occurrence: US)
  Receive Date: 20200419
  Receipt Date: 20200419
  Transmission Date: 20200714
  Serious: Yes (Life-Threatening, Hospitalization, Disabling, Other)
  Sender: FDA-Public Use
  Company Number: None

PATIENT
  Age: 22 Year
  Sex: Female
  Weight: 82.5 kg

DRUGS (2)
  1. NUVARING [Suspect]
     Active Substance: ETHINYL ESTRADIOL\ETONOGESTREL
     Route: 067
  2. HEPARIN [Suspect]
     Active Substance: HEPARIN SODIUM

REACTIONS (5)
  - Mouth ulceration [None]
  - Cerebral haemorrhage [None]
  - Post procedural complication [None]
  - Conjunctival hyperaemia [None]
  - Cerebral venous sinus thrombosis [None]

NARRATIVE: CASE EVENT DATE: 20200406
